FAERS Safety Report 4383092-8 (Version None)
Quarter: 2004Q2

REPORT INFORMATION
  Report Type: 
  Country: None (occurrence: None)
  Receive Date: 20040622
  Receipt Date: 20040622
  Transmission Date: 20050107
  Serious: Yes (Hospitalization)
  Sender: FDA-Public Use
  Company Number: None

PATIENT
  Age: 52 Year
  Sex: Male
  Weight: 102.0593 kg

DRUGS (1)
  1. XYLOCAINE [Suspect]
     Indication: NERVE BLOCK
     Dosage: 50 ML BIER BLOCK

REACTIONS (5)
  - ANAESTHETIC COMPLICATION [None]
  - BLOOD GLUCOSE INCREASED [None]
  - BLOOD PRESSURE INCREASED [None]
  - COMA [None]
  - RESPIRATORY ARREST [None]
